FAERS Safety Report 11012284 (Version 1)
Quarter: 2015Q2

REPORT INFORMATION
  Report Type: Spontaneous
  Country: US (occurrence: None)
  Receive Date: 20150410
  Receipt Date: 20150410
  Transmission Date: 20150821
  Serious: No
  Sender: FDA-Public Use
  Company Number: None

PATIENT
  Sex: Male

DRUGS (1)
  1. SANDIMMUNE [Suspect]
     Active Substance: CYCLOSPORINE
     Indication: LIVER TRANSPLANT
     Dosage: 5X250 MG CAPSULES
     Route: 048
     Dates: start: 20080215

REACTIONS (2)
  - Nightmare [None]
  - Renal impairment [None]

NARRATIVE: CASE EVENT DATE: 2008
